FAERS Safety Report 6309133-6 (Version None)
Quarter: 2009Q3

REPORT INFORMATION
  Report Type: 
  Country: None (occurrence: None)
  Receive Date: 20090814
  Receipt Date: 20090506
  Transmission Date: 20100115
  Serious: No
  Sender: FDA-Public Use
  Company Number: A0776396A

PATIENT
  Age: 80 Year
  Sex: Male

DRUGS (4)
  1. COREG CR [Suspect]
     Dosage: 20MG PER DAY
     Route: 048
     Dates: start: 20090328
  2. LIPITOR [Concomitant]
  3. BENICAR [Concomitant]
  4. ASPIRIN [Concomitant]

REACTIONS (1)
  - FATIGUE [None]
